FAERS Safety Report 20417071 (Version 4)
Quarter: 2022Q1

REPORT INFORMATION
  Report Type: Spontaneous
  Country: US (occurrence: US)
  Receive Date: 20220202
  Receipt Date: 20220228
  Transmission Date: 20220423
  Serious: Yes (Other)
  Sender: FDA-Public Use
  Company Number: US-ORGANON-O2201USA002336

PATIENT
  Age: 26 Year
  Sex: Female
  Weight: 54.649 kg

DRUGS (2)
  1. NEXPLANON [Suspect]
     Active Substance: ETONOGESTREL
     Indication: Contraception
     Dosage: 1 DOSAGE FORM (68 MG), ONCE, IN LEFT ARM
     Route: 059
     Dates: start: 20220124, end: 20220125
  2. NEXPLANON [Suspect]
     Active Substance: ETONOGESTREL
     Dosage: 1 IMPLANT IN LEFT ARM
     Route: 059
     Dates: start: 20190124, end: 20220124

REACTIONS (6)
  - Device dislocation [Recovered/Resolved]
  - Neuropathy peripheral [Recovered/Resolved with Sequelae]
  - Implant site hypoaesthesia [Unknown]
  - Pain in extremity [Recovered/Resolved with Sequelae]
  - Asthenia [Unknown]
  - Implant site scar [Unknown]

NARRATIVE: CASE EVENT DATE: 20190124
